FAERS Safety Report 6679765-4 (Version None)
Quarter: 2010Q2

REPORT INFORMATION
  Report Type: 
  Country: None (occurrence: None)
  Receive Date: 20100413
  Receipt Date: 20091117
  Transmission Date: 20101027
  Serious: No
  Sender: FDA-Public Use
  Company Number: US-ASTRAZENECA-2009SE27074

PATIENT
  Age: 66 Year
  Sex: Male

DRUGS (1)
  1. ATENOLOL [Suspect]
     Route: 048

REACTIONS (2)
  - HEART RATE DECREASED [None]
  - HYPOTENSION [None]
